FAERS Safety Report 14587468 (Version 1)
Quarter: 2018Q1

REPORT INFORMATION
  Report Type: Report from Study
  Country: BR (occurrence: BR)
  Receive Date: 20180301
  Receipt Date: 20180301
  Transmission Date: 20180509
  Serious: Yes (Death, Hospitalization)
  Sender: FDA-Public Use
  Company Number: PHHY2016BR173920

PATIENT
  Sex: Male
  Weight: 79 kg

DRUGS (1)
  1. EXELON PATCH [Suspect]
     Active Substance: RIVASTIGMINE
     Indication: DEMENTIA ALZHEIMER^S TYPE
     Dosage: 4.6 MG, QD (PATCH 5 CM2) (1 PATCH A DAY AFTER BATH)
     Route: 062

REACTIONS (3)
  - Pneumonia [Recovering/Resolving]
  - Death [Fatal]
  - Drug ineffective [Unknown]
